FAERS Safety Report 18294194 (Version 2)
Quarter: 2020Q3

REPORT INFORMATION
  Report Type: Spontaneous
  Country: US (occurrence: US)
  Receive Date: 20200921
  Receipt Date: 20200930
  Transmission Date: 20201103
  Serious: No
  Sender: FDA-Public Use
  Company Number: US-ELI_LILLY_AND_COMPANY-US202009007527

PATIENT
  Age: 86 Year
  Sex: Male

DRUGS (3)
  1. HUMULIN N [Suspect]
     Active Substance: INSULIN HUMAN
     Dosage: 60 U, EACH MORNING
     Route: 058
  2. HUMULIN N [Suspect]
     Active Substance: INSULIN HUMAN
     Indication: TYPE 2 DIABETES MELLITUS
     Dosage: 60 U, PRN
     Route: 058
     Dates: start: 2010
  3. HUMULIN N [Suspect]
     Active Substance: INSULIN HUMAN
     Dosage: 35?38 U, DAILY (NIGHT DEPENDING ON BLOOD GLUCOSE)
     Route: 058

REACTIONS (3)
  - Blood glucose fluctuation [Unknown]
  - Injection site reaction [Unknown]
  - Blood glucose increased [Recovering/Resolving]

NARRATIVE: CASE EVENT DATE: 20200915
